FAERS Safety Report 8969973 (Version 1)
Quarter: 2012Q4

REPORT INFORMATION
  Report Type: 
  Country: US (occurrence: US)
  Receive Date: 20121217
  Receipt Date: 20121217
  Transmission Date: 20130627
  Serious: No
  Sender: FDA-Public Use
  Company Number: US-PFIZER INC-2012318154

PATIENT
  Age: 58 Year
  Sex: Female

DRUGS (3)
  1. ZOLOFT [Suspect]
     Indication: DEPRESSION
     Dosage: 12.5 mg, 1x/day
     Route: 048
  2. ZOLPIDEM TARTRATE EXTENDED RELEASE [Suspect]
     Indication: INSOMNIA
     Dosage: 12.5 mg, at bed time
     Dates: start: 20121122, end: 20121127
  3. DEXTROAMPHETAMINE [Concomitant]
     Indication: ADHD
     Dosage: 10 mg, Every morning
     Route: 048

REACTIONS (2)
  - Drug ineffective [Unknown]
  - Insomnia [Unknown]
